FAERS Safety Report 21261277 (Version 3)
Quarter: 2023Q2

REPORT INFORMATION
  Report Type: Spontaneous
  Country: US (occurrence: US)
  Receive Date: 20220826
  Receipt Date: 20230527
  Transmission Date: 20230722
  Serious: No
  Sender: FDA-Public Use
  Company Number: US-Dermavant-000118

PATIENT
  Age: 67 Year
  Sex: Female

DRUGS (1)
  1. VTAMA [Suspect]
     Active Substance: TAPINAROF
     Indication: Psoriasis
     Dosage: SINCE UNKNOWN 2022, APPROXIMATELY 4 WEEKS AGO THE PATIENT STARTED VTAMA (EXPIRY: OCT-2023)
     Dates: start: 2022

REACTIONS (4)
  - Burning sensation [Unknown]
  - Paraesthesia [Unknown]
  - Pruritus [Unknown]
  - Insomnia [Unknown]
